FAERS Safety Report 25822454 (Version 1)
Quarter: 2025Q3

REPORT INFORMATION
  Report Type: Spontaneous
  Country: US (occurrence: US)
  Receive Date: 20250919
  Receipt Date: 20250919
  Transmission Date: 20251020
  Serious: Yes (Other)
  Sender: MYLAN
  Company Number: US-MYLANLABS-2025M1078941

PATIENT
  Age: 54 Year
  Sex: Male

DRUGS (6)
  1. METHOTREXATE [Suspect]
     Active Substance: METHOTREXATE
     Indication: Sarcoidosis
  2. METHOTREXATE [Suspect]
     Active Substance: METHOTREXATE
     Indication: Small fibre neuropathy
  3. INFLIXIMAB [Concomitant]
     Active Substance: INFLIXIMAB
     Indication: Sarcoidosis
  4. INFLIXIMAB [Concomitant]
     Active Substance: INFLIXIMAB
     Indication: Small fibre neuropathy
  5. Immunoglobulin [Concomitant]
     Indication: Sarcoidosis
  6. Immunoglobulin [Concomitant]
     Indication: Small fibre neuropathy

REACTIONS (2)
  - Treatment failure [Unknown]
  - Off label use [Unknown]
